FAERS Safety Report 8991239 (Version 1)
Quarter: 2012Q4

REPORT INFORMATION
  Report Type: Report from Study
  Country: CA (occurrence: CA)
  Receive Date: 20121231
  Receipt Date: 20121231
  Transmission Date: 20130627
  Serious: Yes (Hospitalization, Other)
  Sender: FDA-Public Use
  Company Number: CA-ROCHE-1168058

PATIENT
  Sex: Male
  Weight: 49 kg

DRUGS (2)
  1. OMALIZUMAB [Suspect]
     Indication: ASTHMA
     Route: 058
     Dates: start: 20071022
  2. OMALIZUMAB [Suspect]
     Dosage: UNK
     Route: 058
     Dates: start: 20100303

REACTIONS (13)
  - Osteoarthritis [Unknown]
  - Upper respiratory tract infection [Recovering/Resolving]
  - Wound infection [Unknown]
  - Cyst [Unknown]
  - Pharyngitis [Unknown]
  - Bronchitis [Recovered/Resolved]
  - Heart rate increased [Unknown]
  - Heart rate irregular [Unknown]
  - Lung infection [Unknown]
  - Arthralgia [Unknown]
  - Secretion discharge [Unknown]
  - Pallor [Unknown]
  - Dyspnoea [Unknown]
